FAERS Safety Report 6195706-0 (Version None)
Quarter: 2009Q2

REPORT INFORMATION
  Report Type: 
  Country: None (occurrence: None)
  Receive Date: 20090520
  Receipt Date: 20070926
  Transmission Date: 20091009
  Serious: Yes (Other)
  Sender: FDA-Public Use
  Company Number: US-ASTRAZENECA-2007UW16421

PATIENT
  Age: 16743 Day
  Sex: Female
  Weight: 93 kg

DRUGS (28)
  1. SEROQUEL [Suspect]
     Indication: MENTAL DISORDER
     Route: 048
     Dates: start: 20010101
  2. SEROQUEL [Suspect]
     Dosage: 25-200 MG
     Route: 048
     Dates: start: 20010815
  3. QUINAPRIL [Concomitant]
  4. METFORMIN HCL [Concomitant]
  5. PAXIL [Concomitant]
     Dosage: 10-30 MG
     Route: 048
  6. BUSPAR [Concomitant]
  7. SINEQUAN [Concomitant]
  8. COGENTIN [Concomitant]
  9. GLUCOPHAGE [Concomitant]
     Indication: DIABETES MELLITUS
  10. PAXIL CR [Concomitant]
     Route: 048
  11. REQUIP [Concomitant]
     Indication: RESTLESS LEGS SYNDROME
     Dosage: 1-2 MG DAILY
     Route: 048
  12. HYDROXYZINE HYDROCHLORIDE [Concomitant]
  13. AMITRIPTLINE HYDROCHLORIDE TAB [Concomitant]
  14. NEURONTIN [Concomitant]
     Indication: ARTHRITIS
     Dosage: 100-300 MG
  15. FERROUS SULFATE TAB [Concomitant]
  16. OYST-CAL [Concomitant]
  17. IBUPROFEN [Concomitant]
  18. DIPHENHYDRAMINE HCL [Concomitant]
  19. BACLOFEN [Concomitant]
  20. LYRICA [Concomitant]
  21. LISINOPRIL [Concomitant]
  22. VIOXX [Concomitant]
  23. QUININE SULFATE [Concomitant]
  24. ENDODAN [Concomitant]
  25. ASPIRIN [Concomitant]
  26. DIAZEPAM [Concomitant]
  27. KLOR-CON [Concomitant]
     Dosage: 8 MEQ
  28. FLUCONAZOLE [Concomitant]

REACTIONS (9)
  - DIABETES MELLITUS [None]
  - DIABETIC KETOACIDOSIS [None]
  - DISCOMFORT [None]
  - DIZZINESS [None]
  - MAJOR DEPRESSION [None]
  - PAIN IN EXTREMITY [None]
  - SCHIZOPHRENIA, UNDIFFERENTIATED TYPE [None]
  - SYNCOPE [None]
  - VULVOVAGINAL CANDIDIASIS [None]
